FAERS Safety Report 6061200-0 (Version None)
Quarter: 2009Q1

REPORT INFORMATION
  Report Type: 
  Country: None (occurrence: None)
  Receive Date: 20090202
  Receipt Date: 20090122
  Transmission Date: 20090719
  Serious: Yes (Hospitalization)
  Sender: FDA-Public Use
  Company Number: JP-JNJFOC-20080105475

PATIENT
  Sex: Female
  Weight: 55 kg

DRUGS (21)
  1. REMICADE [Suspect]
     Route: 042
  2. REMICADE [Suspect]
     Dosage: 6 INFUSIONS ON UNKNOWN DATES
     Route: 042
  3. REMICADE [Suspect]
     Indication: RHEUMATOID ARTHRITIS
     Route: 042
  4. BAKUMONDO-TO [Concomitant]
     Indication: SJOGREN'S SYNDROME
     Dosage: DOSE : 3 PAC PER DAY
     Route: 048
  5. AMARYL [Concomitant]
     Indication: DIABETES MELLITUS
     Route: 048
  6. SALIGREN [Concomitant]
     Indication: SJOGREN'S SYNDROME
     Route: 048
  7. WASSER V [Concomitant]
     Indication: SJOGREN'S SYNDROME
     Route: 048
  8. MECOBALAMIN [Concomitant]
     Indication: DIABETES MELLITUS
     Route: 048
  9. RAIPECK [Concomitant]
     Indication: RHEUMATOID ARTHRITIS
     Route: 048
  10. MUCOSTA [Concomitant]
     Indication: GASTRITIS
     Route: 048
  11. PREDNISONE [Concomitant]
     Route: 048
  12. PREDNISONE [Concomitant]
     Indication: RHEUMATOID ARTHRITIS
     Route: 048
  13. PARIET [Concomitant]
     Indication: GASTROOESOPHAGEAL REFLUX DISEASE
     Route: 048
  14. EPEL [Concomitant]
     Indication: RHEUMATOID ARTHRITIS
     Route: 048
  15. MUCODYNE [Concomitant]
     Indication: SJOGREN'S SYNDROME
     Route: 048
  16. HIBON [Concomitant]
     Indication: SJOGREN'S SYNDROME
     Route: 048
  17. FOLIAMIN [Concomitant]
     Indication: RHEUMATOID ARTHRITIS
     Route: 048
  18. RHEUMATREX [Concomitant]
     Route: 048
  19. RHEUMATREX [Concomitant]
     Indication: RHEUMATOID ARTHRITIS
     Route: 048
  20. GASRICK D [Concomitant]
     Route: 048
  21. HYPEN [Concomitant]
     Route: 048

REACTIONS (3)
  - ALANINE AMINOTRANSFERASE INCREASED [None]
  - ASPARTATE AMINOTRANSFERASE INCREASED [None]
  - TUBERCULOSIS [None]
